FAERS Safety Report 9735904 (Version 3)
Quarter: 2015Q3

REPORT INFORMATION
  Report Type: Spontaneous
  Country: US (occurrence: US)
  Receive Date: 20131206
  Receipt Date: 20150804
  Transmission Date: 20151125
  Serious: No
  Sender: FDA-Public Use
  Company Number: US-GILEAD-2009-0024034

PATIENT
  Age: 69 Year
  Sex: Female

DRUGS (15)
  1. ARICEPT [Concomitant]
     Active Substance: DONEPEZIL HYDROCHLORIDE
  2. SINIMET [Concomitant]
  3. MVI [Concomitant]
     Active Substance: VITAMINS
  4. ALENDRONATE [Concomitant]
     Active Substance: ALENDRONATE SODIUM
  5. LETAIRIS [Suspect]
     Active Substance: AMBRISENTAN
     Indication: PULMONARY ARTERIAL HYPERTENSION
     Route: 048
     Dates: start: 20090424, end: 20090724
  6. ASPIRIN. [Concomitant]
     Active Substance: ASPIRIN
  7. LEVODOPA [Concomitant]
     Active Substance: LEVODOPA
  8. TRAZODONE [Concomitant]
     Active Substance: TRAZODONE HYDROCHLORIDE
  9. POTASSIUM [Concomitant]
     Active Substance: POTASSIUM
  10. HYDROCHLOROTHIAZIDE. [Concomitant]
     Active Substance: HYDROCHLOROTHIAZIDE
  11. DIGOXIN. [Concomitant]
     Active Substance: DIGOXIN
  12. CARBIDOPA. [Concomitant]
     Active Substance: CARBIDOPA
  13. SEROQUEL [Concomitant]
     Active Substance: QUETIAPINE FUMARATE
  14. LISINOPRIL. [Concomitant]
     Active Substance: LISINOPRIL
  15. ROPIRINOLE [Concomitant]

REACTIONS (1)
  - Hypotension [Recovered/Resolved]
